FAERS Safety Report 5065988-7 (Version None)
Quarter: 2006Q3

REPORT INFORMATION
  Report Type: 
  Country: None (occurrence: None)
  Receive Date: 20060731
  Receipt Date: 20060731
  Transmission Date: 20061208
  Serious: Yes (Other)
  Sender: FDA-Public Use
  Company Number: None

PATIENT
  Age: 46 Year
  Sex: Female
  Weight: 49.8957 kg

DRUGS (5)
  1. LEXAPRO [Suspect]
     Indication: BONE DISORDER
     Dosage: 10MG   ONCE A DAY   047
     Dates: start: 20060404, end: 20060514
  2. LEXAPRO [Suspect]
     Indication: DEPRESSION
     Dosage: 10MG   ONCE A DAY   047
     Dates: start: 20060404, end: 20060514
  3. ADVAIR DISKUS 100/50 [Concomitant]
  4. SYNTHROID [Concomitant]
  5. LEENA 28 (BIRTH CONTROL) [Concomitant]

REACTIONS (4)
  - ALOPECIA [None]
  - PAIN OF SKIN [None]
  - PRURITUS [None]
  - SKIN DISORDER [None]
